FAERS Safety Report 7565213-9 (Version None)
Quarter: 2011Q2

REPORT INFORMATION
  Report Type: 
  Country: None (occurrence: None)
  Receive Date: 20110622
  Receipt Date: 20110620
  Transmission Date: 20111010
  Serious: Yes (Disabling)
  Sender: FDA-Public Use
  Company Number: US-MERCK-1106USA02754

PATIENT
  Sex: Female

DRUGS (4)
  1. RISEDRONATE SODIUM [Suspect]
     Route: 065
     Dates: end: 20100101
  2. ACTONEL [Suspect]
     Route: 065
     Dates: end: 20100101
  3. FOSAMAX [Suspect]
     Route: 048
     Dates: end: 20100101
  4. ALENDRONATE SODIUM [Suspect]
     Route: 048
     Dates: end: 20100101

REACTIONS (3)
  - BONE DISORDER [None]
  - ADVERSE EVENT [None]
  - FEMUR FRACTURE [None]
